FAERS Safety Report 9032607 (Version 2)
Quarter: 2013Q1

REPORT INFORMATION
  Report Type: Spontaneous
  Country: US (occurrence: None)
  Receive Date: 20130109
  Receipt Date: 20130124
  Transmission Date: 20140127
  Serious: Yes (Death)
  Sender: FDA-Public Use
  Company Number: 2013SP000185

PATIENT
  Age: 38 Year
  Sex: Male

DRUGS (8)
  1. HALOPERIDOL DECANOATE [Suspect]
     Route: 048
  2. DICLOFENAC SODIUM [Suspect]
     Route: 048
  3. AMLODIPINE BESILATE [Suspect]
     Route: 048
  4. VENLAFAXINE HYDROCHLORIDE [Suspect]
     Route: 048
  5. ALPRAZOLAM [Suspect]
     Route: 048
  6. ACETAMINOPHEN [Suspect]
     Route: 048
  7. TRIAMTERENE [Suspect]
     Route: 048
  8. HYDROCODONE [Suspect]

REACTIONS (2)
  - Completed suicide [None]
  - Toxicity to various agents [None]
